FAERS Safety Report 15255164 (Version 1)
Quarter: 2018Q3

REPORT INFORMATION
  Report Type: Spontaneous
  Country: US (occurrence: US)
  Receive Date: 20180808
  Receipt Date: 20180808
  Transmission Date: 20181010
  Serious: No
  Sender: FDA-Public Use
  Company Number: US-MYLANLABS-2018M1060201

PATIENT
  Age: 2 Year

DRUGS (1)
  1. MERCAPTAMINE [Suspect]
     Active Substance: CYSTEAMINE
     Indication: FANCONI SYNDROME
     Dosage: TOOK 4 TIMES A DAY (NOT MIXED WITH FOOD)
     Route: 048

REACTIONS (2)
  - Vomiting [Unknown]
  - Treatment noncompliance [Unknown]
